FAERS Safety Report 14078418 (Version 3)
Quarter: 2020Q1

REPORT INFORMATION
  Report Type: Spontaneous
  Country: US (occurrence: US)
  Receive Date: 20171012
  Receipt Date: 20200103
  Transmission Date: 20200409
  Serious: No
  Sender: FDA-Public Use
  Company Number: US-PFIZER INC-2017438921

PATIENT
  Age: 64 Year
  Sex: Male

DRUGS (1)
  1. PANTOPRAZOLE [Suspect]
     Active Substance: PANTOPRAZOLE
     Dosage: 40 MG, 4X/DAY (TAKE 1 TABLET 4 TIMES A DAY BY ORAL ROUTE BEFORE MEALS FOR 90 DAYS)
     Route: 048

REACTIONS (5)
  - Product use issue [Unknown]
  - Drug ineffective [Unknown]
  - Dizziness [Unknown]
  - Off label use [Unknown]
  - Vomiting [Unknown]
